FAERS Safety Report 5784781-0 (Version None)
Quarter: 2008Q2

REPORT INFORMATION
  Report Type: 
  Country: None (occurrence: None)
  Receive Date: 20080605
  Receipt Date: 20080414
  Transmission Date: 20081010
  Serious: No
  Sender: FDA-Public Use
  Company Number: A0722574A

PATIENT

DRUGS (1)
  1. ALLI [Suspect]

REACTIONS (4)
  - CHANGE OF BOWEL HABIT [None]
  - DIARRHOEA [None]
  - FREQUENT BOWEL MOVEMENTS [None]
  - WEIGHT LOSS POOR [None]
